FAERS Safety Report 16107262 (Version 2)
Quarter: 2019Q2

REPORT INFORMATION
  Report Type: Spontaneous
  Country: US (occurrence: US)
  Receive Date: 20190322
  Receipt Date: 20190409
  Transmission Date: 20190711
  Serious: No
  Sender: FDA-Public Use
  Company Number: US-SA-2019SA076035

PATIENT
  Sex: Female

DRUGS (1)
  1. PRALUENT [Suspect]
     Active Substance: ALIROCUMAB
     Indication: HYPERCHOLESTEROLAEMIA
     Dosage: 75 MG, QOW
     Route: 058
     Dates: start: 20190315

REACTIONS (4)
  - Incorrect dose administered [Unknown]
  - Device use issue [Unknown]
  - Throat clearing [Unknown]
  - Dysphonia [Unknown]

NARRATIVE: CASE EVENT DATE: 20190315
